FAERS Safety Report 15231856 (Version 2)
Quarter: 2018Q3

REPORT INFORMATION
  Report Type: Spontaneous
  Country: US (occurrence: US)
  Receive Date: 20180802
  Receipt Date: 20180817
  Transmission Date: 20181010
  Serious: No
  Sender: FDA-Public Use
  Company Number: US-PFIZER INC-2018307599

PATIENT
  Age: 52 Year
  Sex: Male
  Weight: 104 kg

DRUGS (6)
  1. IMODIUM [Concomitant]
     Active Substance: LOPERAMIDE HYDROCHLORIDE
     Dosage: UNK
  2. PROMETHAZINE [Concomitant]
     Active Substance: PROMETHAZINE\PROMETHAZINE HYDROCHLORIDE
     Dosage: UNK
  3. SUTENT [Suspect]
     Active Substance: SUNITINIB MALATE
     Indication: ADJUVANT THERAPY
     Dosage: 50 MG, CYCLIC, [28 DAYS ON/14 DAYS OFF]
     Dates: start: 20180723
  4. ATIVAN [Concomitant]
     Active Substance: LORAZEPAM
     Dosage: UNK
  5. TRAZODONE [Concomitant]
     Active Substance: TRAZODONE HYDROCHLORIDE
     Dosage: UNK
  6. ALLEGRA [Concomitant]
     Active Substance: FEXOFENADINE HYDROCHLORIDE
     Dosage: UNK

REACTIONS (20)
  - Fatigue [Unknown]
  - Blood creatinine increased [Recovered/Resolved]
  - Oral pain [Unknown]
  - Ageusia [Unknown]
  - Nausea [Unknown]
  - Dehydration [Unknown]
  - Erythema [Unknown]
  - Tongue discomfort [Unknown]
  - Oral discomfort [Unknown]
  - Pruritus [Unknown]
  - Paraesthesia [Unknown]
  - Hypoglycaemia [Unknown]
  - Condition aggravated [Not Recovered/Not Resolved]
  - Feeling abnormal [Unknown]
  - Malaise [Unknown]
  - Post procedural infection [Recovering/Resolving]
  - Pain [Unknown]
  - Pain in extremity [Unknown]
  - Diarrhoea [Not Recovered/Not Resolved]
  - Dysgeusia [Unknown]

NARRATIVE: CASE EVENT DATE: 2018
